FAERS Safety Report 9818372 (Version 1)
Quarter: 2014Q1

REPORT INFORMATION
  Report Type: Spontaneous
  Country: US (occurrence: US)
  Receive Date: 20140115
  Receipt Date: 20140115
  Transmission Date: 20141002
  Serious: No
  Sender: FDA-Public Use
  Company Number: US-PFIZER INC-2014009097

PATIENT
  Age: 43 Year
  Sex: Female
  Weight: 67.12 kg

DRUGS (6)
  1. LYRICA [Suspect]
     Indication: PAIN
     Dosage: UNK
     Route: 048
     Dates: start: 20071225
  2. LYRICA [Suspect]
     Dosage: 220 MG, 3X/DAY
     Route: 048
     Dates: start: 2012, end: 2012
  3. LYRICA [Suspect]
     Dosage: 75 MG, 3X/DAY
     Route: 048
     Dates: start: 2012
  4. TOPAMAX [Suspect]
     Indication: PAIN
     Dosage: 25 MG, UNK
     Route: 048
     Dates: start: 2012
  5. MOTRIN [Concomitant]
     Dosage: UNK
  6. COPAXONE [Concomitant]
     Dosage: UNK

REACTIONS (8)
  - Eye disorder [Not Recovered/Not Resolved]
  - Head discomfort [Not Recovered/Not Resolved]
  - Vision blurred [Not Recovered/Not Resolved]
  - Malaise [Not Recovered/Not Resolved]
  - Eye pain [Not Recovered/Not Resolved]
  - Paraesthesia [Not Recovered/Not Resolved]
  - Dyskinesia [Not Recovered/Not Resolved]
  - Off label use [Unknown]
